FAERS Safety Report 12416062 (Version 3)
Quarter: 2016Q2

REPORT INFORMATION
  Report Type: Spontaneous
  Country: JP (occurrence: JP)
  Receive Date: 20160530
  Receipt Date: 20160624
  Transmission Date: 20160815
  Serious: Yes (Other)
  Sender: FDA-Public Use
  Company Number: JP-009507513-1605JPN013755

PATIENT
  Sex: Female

DRUGS (4)
  1. BELSOMRA [Suspect]
     Active Substance: SUVOREXANT
     Indication: INSOMNIA
     Dosage: 15 MG, QD
     Route: 048
     Dates: start: 20160518, end: 20160518
  2. RESLIN TABLETS 25 [Suspect]
     Active Substance: TRAZODONE HYDROCHLORIDE
     Indication: INSOMNIA
     Dosage: 75 MG, QD
     Route: 048
     Dates: start: 20160518, end: 20160518
  3. SILECE [Suspect]
     Active Substance: FLUNITRAZEPAM
     Dosage: 0.5 MG, QD
     Route: 048
     Dates: start: 20160518, end: 20160518
  4. SILECE [Suspect]
     Active Substance: FLUNITRAZEPAM
     Indication: INSOMNIA
     Dosage: 0.75 MG, QD
     Route: 048
     Dates: end: 201605

REACTIONS (3)
  - Urinary retention [Recovered/Resolved]
  - Oral discomfort [Recovered/Resolved]
  - Thirst [Recovered/Resolved]

NARRATIVE: CASE EVENT DATE: 201605
